FAERS Safety Report 17798681 (Version 1)
Quarter: 2020Q2

REPORT INFORMATION
  Report Type: Spontaneous
  Country: US (occurrence: US)
  Receive Date: 20200518
  Receipt Date: 20200518
  Transmission Date: 20200714
  Serious: Yes (Other)
  Sender: FDA-Public Use
  Company Number: None

PATIENT
  Age: 81 Year
  Sex: Female
  Weight: 43.65 kg

DRUGS (12)
  1. HAWTHORNE BERRIES [Concomitant]
  2. ASPIRIN 81 MG [Concomitant]
     Active Substance: ASPIRIN
  3. KEYTRUDA [Suspect]
     Active Substance: PEMBROLIZUMAB
     Indication: LUNG NEOPLASM MALIGNANT
     Dosage: ?          QUANTITY:1 IV INFUSION;OTHER FREQUENCY:EVERY THREE WEEKS;OTHER ROUTE:IV INFUSION?
  4. VITAMIN B6 [Concomitant]
     Active Substance: PYRIDOXINE HYDROCHLORIDE
  5. BIOTIN [Concomitant]
     Active Substance: BIOTIN
  6. VIT D [Concomitant]
     Active Substance: VITAMIN D NOS
  7. BEE POLLEN [Concomitant]
     Active Substance: BEE POLLEN
  8. MULTI-VITAMIN [Concomitant]
     Active Substance: .ALPHA.-TOCOPHEROL ACETATE, DL-\ASCORBIC ACID\CYANOCOBALAMIN\FLUORIDE ION\FOLIC ACID\NIACIN\PYRIDOXINE\RIBOFLAVIN\THIAMINE\VITAMIN A\VITAMIN D
  9. TYLENOL [Concomitant]
     Active Substance: ACETAMINOPHEN
  10. LEVOTHYROXINE 88 MCG [Concomitant]
     Active Substance: LEVOTHYROXINE
  11. VITAMIN B12 [Concomitant]
     Active Substance: CYANOCOBALAMIN
  12. VITAMIN C [Concomitant]
     Active Substance: ASCORBIC ACID

REACTIONS (1)
  - Blood glucose increased [None]

NARRATIVE: CASE EVENT DATE: 20200515
